FAERS Safety Report 10395259 (Version 1)
Quarter: 2014Q3

REPORT INFORMATION
  Report Type: Spontaneous
  Country: FR (occurrence: FR)
  Receive Date: 20140820
  Receipt Date: 20140820
  Transmission Date: 20150326
  Serious: Yes (Hospitalization)
  Sender: FDA-Public Use
  Company Number: PHHY2014FR101560

PATIENT
  Age: 66 Year
  Sex: Female

DRUGS (4)
  1. LYTOS [Suspect]
     Active Substance: CLODRONATE DISODIUM
     Dosage: UNK UKN, UNK
     Route: 048
     Dates: start: 200903, end: 201102
  2. ZOMETA [Suspect]
     Active Substance: ZOLEDRONIC ACID
     Indication: METASTASES TO BONE
     Dosage: 4 MG PER 100 ML
     Route: 042
     Dates: start: 20110208, end: 20121218
  3. AROMASIN [Concomitant]
     Active Substance: EXEMESTANE
     Dosage: UNK UKN, UNK
  4. AFINITOR [Concomitant]
     Active Substance: EVEROLIMUS
     Dosage: UNK UKN, UNK

REACTIONS (1)
  - Osteonecrosis of jaw [Recovering/Resolving]

NARRATIVE: CASE EVENT DATE: 201212
